FAERS Safety Report 5782568-6 (Version None)
Quarter: 2008Q2

REPORT INFORMATION
  Report Type: 
  Country: None (occurrence: None)
  Receive Date: 20080623
  Receipt Date: 20080611
  Transmission Date: 20081010
  Serious: Yes (Other)
  Sender: FDA-Public Use
  Company Number: GB-PFIZER INC-2008049790

PATIENT
  Age: 36 Year
  Sex: Male

DRUGS (3)
  1. CLINDAMYCIN HCL [Suspect]
     Indication: STREPTOCOCCAL INFECTION
     Route: 048
     Dates: start: 20080609, end: 20080611
  2. CLINDAMYCIN HCL [Suspect]
     Indication: STREPTOCOCCAL INFECTION
     Route: 042
  3. RIFAMPICIN [Concomitant]

REACTIONS (2)
  - BLOOD POTASSIUM INCREASED [None]
  - BLOOD SODIUM DECREASED [None]
